FAERS Safety Report 21968427 (Version 3)
Quarter: 2023Q1

REPORT INFORMATION
  Report Type: Report from Study
  Country: ES (occurrence: ES)
  Receive Date: 20230208
  Receipt Date: 20230313
  Transmission Date: 20230418
  Serious: Yes (Hospitalization, Other)
  Sender: FDA-Public Use
  Company Number: ES-TAKEDA-2023TUS012120

PATIENT
  Age: 14 Year
  Sex: Male
  Weight: 31 kg

DRUGS (17)
  1. IDURSULFASE [Suspect]
     Active Substance: IDURSULFASE
     Indication: Mucopolysaccharidosis II
     Dosage: UNK
     Route: 042
     Dates: start: 20100922
  2. IDURSULFASE [Suspect]
     Active Substance: IDURSULFASE
     Dosage: 0.5 MILLIGRAM/KILOGRAM, 1/WEEK
     Route: 042
     Dates: start: 201911
  3. LORATADINE [Concomitant]
     Active Substance: LORATADINE
     Indication: Hypersensitivity
     Dosage: UNK
     Route: 048
     Dates: start: 20120130, end: 20120318
  4. BUDESONIDE [Concomitant]
     Active Substance: BUDESONIDE
     Indication: Asthma
     Dosage: UNK
     Route: 048
     Dates: start: 20131025, end: 20140202
  5. CLARITHROMYCIN [Concomitant]
     Active Substance: CLARITHROMYCIN
     Indication: Contusion
     Dosage: UNK
     Route: 050
     Dates: start: 20160727, end: 20160801
  6. VANCOMYCIN [Concomitant]
     Active Substance: VANCOMYCIN
     Indication: Staphylococcal infection
     Dosage: UNK
     Route: 048
     Dates: start: 20170709, end: 20170721
  7. VANCOMYCIN [Concomitant]
     Active Substance: VANCOMYCIN
     Indication: Hyperaemia
     Dosage: UNK
     Route: 042
     Dates: start: 20181121, end: 20181203
  8. VANCOMYCIN [Concomitant]
     Active Substance: VANCOMYCIN
     Indication: Pyrexia
     Dosage: UNK
     Route: 042
     Dates: start: 20190329, end: 20190329
  9. FERROUS SULFATE [Concomitant]
     Active Substance: FERROUS SULFATE
     Indication: Iron deficiency
     Dosage: UNK
     Route: 048
     Dates: start: 20170721
  10. AZELASTINE [Concomitant]
     Active Substance: AZELASTINE
     Indication: Conjunctivitis
     Dosage: UNK
     Route: 050
     Dates: start: 20171109, end: 2017
  11. TEICOPLANIN [Concomitant]
     Active Substance: TEICOPLANIN
     Indication: Pyrexia
     Dosage: UNK
     Route: 042
     Dates: start: 20190329, end: 20190330
  12. MOMETASONE [Concomitant]
     Active Substance: MOMETASONE
     Dosage: UNK
     Route: 045
     Dates: start: 20220217, end: 202205
  13. ACETAMINOPHEN [Concomitant]
     Active Substance: ACETAMINOPHEN
     Dosage: UNK
     Route: 048
     Dates: start: 20220406, end: 202204
  14. IBUPROFEN [Concomitant]
     Active Substance: IBUPROFEN
     Dosage: UNK
     Route: 048
     Dates: start: 20220406, end: 202204
  15. AMLODIPINE [Concomitant]
     Active Substance: AMLODIPINE BESYLATE
     Indication: Hypertension
     Dosage: UNK
     Route: 048
     Dates: start: 202301, end: 20230222
  16. OXYGEN [Concomitant]
     Active Substance: OXYGEN
     Indication: Acute respiratory failure
     Dosage: UNK
     Route: 055
     Dates: start: 20230125, end: 20230201
  17. Immunoglobulin [Concomitant]
     Dosage: UNK
     Route: 042
     Dates: start: 20230127, end: 20230129

REACTIONS (1)
  - Guillain-Barre syndrome [Recovered/Resolved]

NARRATIVE: CASE EVENT DATE: 20230125
